FAERS Safety Report 15175697 (Version 2)
Quarter: 2018Q3

REPORT INFORMATION
  Report Type: Report from Study
  Country: US (occurrence: US)
  Receive Date: 20180720
  Receipt Date: 20180817
  Transmission Date: 20181010
  Serious: Yes (Hospitalization)
  Sender: FDA-Public Use
  Company Number: US-ACTELION-A-US2018-175548

PATIENT
  Age: 53 Year
  Sex: Female

DRUGS (14)
  1. HYDROCODONE BITARTRATE AND ACETAMINOPHEN [Concomitant]
     Active Substance: ACETAMINOPHEN\HYDROCODONE BITARTRATE
  2. AMLODIPINE [Concomitant]
     Active Substance: AMLODIPINE BESYLATE
  3. OPSUMIT [Suspect]
     Active Substance: MACITENTAN
     Indication: PULMONARY ARTERIAL HYPERTENSION
     Dosage: 10 MG, QD
     Route: 048
     Dates: start: 20171117
  4. FUROSEMIDE. [Concomitant]
     Active Substance: FUROSEMIDE
  5. ENOXAPARIN [Concomitant]
     Active Substance: ENOXAPARIN
  6. MONTELUKAST [Concomitant]
     Active Substance: MONTELUKAST SODIUM
  7. ACTEMRA [Concomitant]
     Active Substance: TOCILIZUMAB
     Dosage: UNK
     Dates: end: 20180601
  8. POTASSIUM CHLORIDE. [Concomitant]
     Active Substance: POTASSIUM CHLORIDE
  9. TRAMADOL. [Concomitant]
     Active Substance: TRAMADOL
  10. WARFARIN [Concomitant]
     Active Substance: WARFARIN
  11. METHYLPRED [Concomitant]
     Active Substance: METHYLPREDNISOLONE
  12. ELIQUIS [Concomitant]
     Active Substance: APIXABAN
  13. SILDENAFIL. [Concomitant]
     Active Substance: SILDENAFIL
  14. GABAPENTIN. [Concomitant]
     Active Substance: GABAPENTIN

REACTIONS (1)
  - Hip arthroplasty [Recovered/Resolved]

NARRATIVE: CASE EVENT DATE: 20180627
